FAERS Safety Report 5484659-6 (Version None)
Quarter: 2007Q4

REPORT INFORMATION
  Report Type: 
  Country: None (occurrence: None)
  Receive Date: 20071012
  Receipt Date: 20071002
  Transmission Date: 20080405
  Serious: Yes (Hospitalization, Other)
  Sender: FDA-Public Use
  Company Number: GB-PFIZER INC-2006060375

PATIENT
  Sex: Male

DRUGS (2)
  1. ARTHROTEC [Suspect]
     Route: 048
  2. IBUPROFEN [Suspect]

REACTIONS (2)
  - GASTRIC ULCER HAEMORRHAGE [None]
  - INTERVERTEBRAL DISC COMPRESSION [None]
